FAERS Safety Report 5627622-4 (Version None)
Quarter: 2008Q1

REPORT INFORMATION
  Report Type: 
  Country: None (occurrence: None)
  Receive Date: 20080214
  Receipt Date: 20080214
  Transmission Date: 20080703
  Serious: Yes (Other)
  Sender: FDA-Public Use
  Company Number: None

PATIENT
  Age: 15 Year
  Sex: Male
  Weight: 27.2158 kg

DRUGS (1)
  1. BOTOX [Suspect]
     Indication: MUSCLE SPASTICITY
     Dosage: EVERY 3 MONTHS
     Dates: start: 20060601, end: 20080124

REACTIONS (4)
  - BREATH SOUNDS ABNORMAL [None]
  - CHOKING [None]
  - DYSPHAGIA [None]
  - MOVEMENT DISORDER [None]
